FAERS Safety Report 7342789-8 (Version None)
Quarter: 2011Q1

REPORT INFORMATION
  Report Type: 
  Country: None (occurrence: None)
  Receive Date: 20110228
  Receipt Date: 20110217
  Transmission Date: 20110831
  Serious: Yes (Death, Hospitalization)
  Sender: FDA-Public Use
  Company Number: 2011027616

PATIENT
  Age: 64 Year
  Sex: Female
  Weight: 135 kg

DRUGS (1)
  1. ZEMAIRA [Suspect]
     Indication: ALPHA-1 ANTI-TRYPSIN DEFICIENCY
     Dosage: (60 MG/KG 1X/WEEK INTRAVENOUS (NOT OTHERWISE SPECIFIED) )
     Dates: start: 20100301

REACTIONS (2)
  - RESPIRATORY DISTRESS [None]
  - CHRONIC OBSTRUCTIVE PULMONARY DISEASE [None]
